FAERS Safety Report 18055005 (Version 2)
Quarter: 2020Q3

REPORT INFORMATION
  Report Type: Spontaneous
  Country: US (occurrence: US)
  Receive Date: 20200722
  Receipt Date: 20200925
  Transmission Date: 20201103
  Serious: Yes (Other)
  Sender: FDA-Public Use
  Company Number: US-BAYER-2020-146943

PATIENT
  Age: 34 Year

DRUGS (1)
  1. JIVI [Suspect]
     Active Substance: DAMOCTOCOG ALFA PEGOL
     Dosage: 3000 U
     Route: 042

REACTIONS (2)
  - Tongue haemorrhage [Recovered/Resolved]
  - Tongue injury [Recovered/Resolved]

NARRATIVE: CASE EVENT DATE: 20200713
